FAERS Safety Report 5468545-3 (Version None)
Quarter: 2007Q3

REPORT INFORMATION
  Report Type: 
  Country: None (occurrence: None)
  Receive Date: 20070820
  Receipt Date: 20070621
  Transmission Date: 20080115
  Serious: No
  Sender: FDA-Public Use
  Company Number: WAES 0706USA04182

PATIENT
  Age: 45 Year
  Sex: Female
  Weight: 88.4514 kg

DRUGS (11)
  1. JANUVIA [Suspect]
     Indication: TYPE 2 DIABETES MELLITUS
     Dosage: 100 MG/ DAILY/ PO
     Route: 048
     Dates: start: 20061101, end: 20070515
  2. EFFEXOR [Concomitant]
  3. ENJUVIA [Concomitant]
  4. FAMVIR [Concomitant]
  5. HYZAAR [Concomitant]
  6. LAMICTAL [Concomitant]
  7. OMACOR [Concomitant]
  8. PROVIGIL [Concomitant]
  9. TRICOR [Concomitant]
  10. WELLBUTRIN SR [Concomitant]
  11. ZELNORM [Concomitant]

REACTIONS (2)
  - ARTHRALGIA [None]
  - MYALGIA [None]
